FAERS Safety Report 13101152 (Version 1)
Quarter: 2017Q1

REPORT INFORMATION
  Report Type: Spontaneous
  Country: US (occurrence: US)
  Receive Date: 20170110
  Receipt Date: 20170110
  Transmission Date: 20170428
  Serious: Yes (Hospitalization)
  Sender: FDA-Public Use
  Company Number: US-ENDO PHARMACEUTICALS INC.-2017-000087

PATIENT
  Age: 52 Year
  Sex: Male
  Weight: 95.34 kg

DRUGS (3)
  1. OPANA ER [Suspect]
     Active Substance: OXYMORPHONE HYDROCHLORIDE
     Route: 048
     Dates: start: 201611, end: 2016
  2. OPANA ER [Suspect]
     Active Substance: OXYMORPHONE HYDROCHLORIDE
     Route: 048
     Dates: start: 2016, end: 20161215
  3. OPANA ER [Suspect]
     Active Substance: OXYMORPHONE HYDROCHLORIDE
     Route: 048

REACTIONS (4)
  - Constipation [Recovered/Resolved]
  - Vomiting [Recovered/Resolved]
  - Large intestinal obstruction [Recovered/Resolved]
  - Abdominal pain upper [Recovered/Resolved]

NARRATIVE: CASE EVENT DATE: 201512
